FAERS Safety Report 16958891 (Version 1)
Quarter: 2019Q4

REPORT INFORMATION
  Report Type: Spontaneous
  Country: US (occurrence: US)
  Receive Date: 20191024
  Receipt Date: 20191024
  Transmission Date: 20200122
  Serious: No
  Sender: FDA-Public Use
  Company Number: US-BEH-2019108522

PATIENT
  Sex: Female

DRUGS (1)
  1. HIZENTRA [Suspect]
     Active Substance: HUMAN IMMUNOGLOBULIN G
     Indication: IMMUNODEFICIENCY COMMON VARIABLE
     Dosage: 10 GRAM, QW
     Route: 058
     Dates: start: 20190302

REACTIONS (6)
  - Vomiting [Unknown]
  - Nausea [Unknown]
  - Swelling face [Unknown]
  - Paraesthesia [Unknown]
  - Swelling [Unknown]
  - Hypoaesthesia [Unknown]
